FAERS Safety Report 23046905 (Version 1)
Quarter: 2023Q4

REPORT INFORMATION
  Report Type: Spontaneous
  Country: US (occurrence: US)
  Receive Date: 20231009
  Receipt Date: 20231009
  Transmission Date: 20240110
  Serious: Yes (Hospitalization)
  Sender: FDA-Public Use
  Company Number: US-JAZZ PHARMACEUTICALS-2023-US-018828

PATIENT
  Age: 11 Year
  Sex: Male

DRUGS (2)
  1. RYLAZE [Suspect]
     Active Substance: ASPARAGINASE ERWINIA CHRYSANTHEMI (RECOMBINANT)-RYWN
     Indication: B-cell type acute leukaemia
     Dosage: MWF DOSING
  2. RYLAZE [Suspect]
     Active Substance: ASPARAGINASE ERWINIA CHRYSANTHEMI (RECOMBINANT)-RYWN
     Dosage: 25 MILLIGRAM/SQ. METER, EVERY 72 HOURS FOR 6 DOSES

REACTIONS (2)
  - Hyperammonaemia [Unknown]
  - Off label use [Unknown]
